FAERS Safety Report 9420983 (Version 1)
Quarter: 2013Q3

REPORT INFORMATION
  Report Type: Spontaneous
  Country: US (occurrence: US)
  Receive Date: 20130725
  Receipt Date: 20130725
  Transmission Date: 20140515
  Serious: No
  Sender: FDA-Public Use
  Company Number: US-ABBOTT-13P-163-1111901-00

PATIENT
  Sex: Female

DRUGS (8)
  1. SYNTHROID [Suspect]
     Indication: THYROID DISORDER
     Dates: start: 1993, end: 1993
  2. TOPROL [Concomitant]
     Indication: PALPITATIONS
  3. BENICAR [Concomitant]
     Indication: BLOOD PRESSURE
  4. HAIR, SKIN AND NAIL VITAMIN [Concomitant]
     Indication: PRODUCT USED FOR UNKNOWN INDICATION
  5. LEVOTHYROXINE [Concomitant]
     Indication: THYROID DISORDER
     Dates: start: 201306
  6. OMEGA X1 [Concomitant]
     Indication: INFLAMMATION
  7. MAGNESIUM [Concomitant]
     Indication: CARDIAC DISORDER
  8. LEVOXYL [Concomitant]
     Indication: THYROID DISORDER
     Dates: start: 1993, end: 201306

REACTIONS (1)
  - Chest pain [Recovered/Resolved with Sequelae]
